FAERS Safety Report 10452770 (Version 2)
Quarter: 2015Q1

REPORT INFORMATION
  Report Type: Report from Study
  Country: KR (occurrence: KR)
  Receive Date: 20140915
  Receipt Date: 20150319
  Transmission Date: 20150720
  Serious: Yes (Hospitalization, Other)
  Sender: FDA-Public Use
  Company Number: KR-ASTELLAS-2014EU011552

PATIENT
  Age: 22 Year
  Sex: Male

DRUGS (2)
  1. TACROLIMUS. [Suspect]
     Active Substance: TACROLIMUS
     Indication: PROPHYLAXIS AGAINST GRAFT VERSUS HOST DISEASE
     Route: 065
  2. TACROLIMUS. [Suspect]
     Active Substance: TACROLIMUS
     Indication: BONE MARROW TRANSPLANT
     Dosage: 7?10 MG, UNKNOWN FREQ.
     Route: 048

REACTIONS (3)
  - Leukoencephalopathy [Recovered/Resolved]
  - Drug level increased [Unknown]
  - Off label use [Unknown]
